FAERS Safety Report 21918437 (Version 7)
Quarter: 2023Q1

REPORT INFORMATION
  Report Type: Spontaneous
  Country: CA (occurrence: CA)
  Receive Date: 20230127
  Receipt Date: 20230317
  Transmission Date: 20230418
  Serious: Yes (Death, Hospitalization, Other)
  Sender: FDA-Public Use
  Company Number: CA-CELLTRION INC.-2023CA001646

PATIENT

DRUGS (15)
  1. INFLECTRA [Suspect]
     Active Substance: INFLIXIMAB-DYYB
     Indication: Colitis ulcerative
     Dosage: 850 MG Q 0, 2, 6, THEN EVERY 8 WEEKS; WEEK 0 AND 2 AT HOSPITAL
     Route: 042
     Dates: start: 20230107, end: 20230113
  2. INFLECTRA [Suspect]
     Active Substance: INFLIXIMAB-DYYB
     Dosage: 850 MG Q 0, 2, 6, THEN EVERY 8 WEEKS; WEEK 0 AND 2 AT HOSPITAL
     Route: 042
     Dates: start: 20230113
  3. INFLECTRA [Suspect]
     Active Substance: INFLIXIMAB-DYYB
     Dosage: 10 MG/KG, W6 AND EVERY 8 WEEKS
     Route: 042
  4. ASPIRIN [Concomitant]
     Active Substance: ASPIRIN
     Dosage: UNK
  5. ASPIRIN [Concomitant]
     Active Substance: ASPIRIN
     Dosage: 1 DF, DOSAGE INFORMATION NOT AVAILABLE
     Route: 065
  6. CLOPIDRA [Concomitant]
     Indication: Coronary artery disease
     Dosage: UNK
  7. CLOPIDRA [Concomitant]
     Dosage: 1 DF, DOSAGE INFORMATION NOT AVAILABLE
     Route: 065
  8. IRON [Concomitant]
     Active Substance: IRON
     Dosage: 1 DF, DOSAGE INFORMATION NOT AVAILABLE
     Route: 042
  9. NITRO BID [Concomitant]
     Indication: Angina pectoris
     Dosage: UNK
  10. NITRO BID [Concomitant]
     Dosage: 1 DF, DOSAGE INFORMATION NOT AVAILABLE
     Route: 065
  11. PREDNISONE [Concomitant]
     Active Substance: PREDNISONE
     Dosage: 1 DF, 1X/DAY, WEANING OFF 50 MG Q 3 DAYS
     Route: 048
     Dates: start: 2022
  12. ROSUVASTATIN [Concomitant]
     Active Substance: ROSUVASTATIN
     Dosage: UNK
  13. ROSUVASTATIN [Concomitant]
     Active Substance: ROSUVASTATIN
     Dosage: 1 DF, DOSAGE INFORMATION NOT AVAILABLE
     Route: 065
  14. TRANDOLAPRIL [Concomitant]
     Active Substance: TRANDOLAPRIL
     Indication: Hypertension
     Dosage: UNK
  15. TRANDOLAPRIL [Concomitant]
     Active Substance: TRANDOLAPRIL
     Dosage: 1 DF, DOSAGE INFORMATION NOT AVAILABLE
     Route: 065

REACTIONS (14)
  - Death [Fatal]
  - Infection [Unknown]
  - Pyrexia [Unknown]
  - Condition aggravated [Not Recovered/Not Resolved]
  - Blood pressure decreased [Unknown]
  - Blood iron abnormal [Unknown]
  - Cardiac disorder [Unknown]
  - Off label use [Unknown]
  - Malaise [Unknown]
  - Pain [Not Recovered/Not Resolved]
  - Dizziness [Not Recovered/Not Resolved]
  - Impaired driving ability [Not Recovered/Not Resolved]
  - Gastrointestinal motility disorder [Recovering/Resolving]
  - Dysphonia [Recovering/Resolving]

NARRATIVE: CASE EVENT DATE: 20220119
